FAERS Safety Report 20210791 (Version 1)
Quarter: 2021Q4

REPORT INFORMATION
  Report Type: Spontaneous
  Country: GB (occurrence: GB)
  Receive Date: 20211221
  Receipt Date: 20211221
  Transmission Date: 20220303
  Serious: Yes (Life-Threatening, Other)
  Sender: FDA-Public Use
  Company Number: GB-AKCEA THERAPEUTICS, INC.-2021IS001358

PATIENT
  Age: 45 Year
  Sex: Male

DRUGS (4)
  1. METFORMIN [Suspect]
     Active Substance: METFORMIN HYDROCHLORIDE
     Indication: Type 2 diabetes mellitus
     Dosage: UNK
     Route: 065
  2. VOLANESORSEN SODIUM [Suspect]
     Active Substance: VOLANESORSEN SODIUM
     Indication: Familial hypertriglyceridaemia
     Dosage: 285 MG, TWICE WEEKLY
     Route: 058
  3. VOLANESORSEN SODIUM [Suspect]
     Active Substance: VOLANESORSEN SODIUM
     Dosage: 285 MILLIGRAM, EVERY WEEK
     Route: 058
  4. VOLANESORSEN SODIUM [Suspect]
     Active Substance: VOLANESORSEN SODIUM
     Dosage: 285 MILLIGRAM, EVERY WEEK
     Route: 058

REACTIONS (13)
  - Blood triglycerides increased [Unknown]
  - Flank pain [Unknown]
  - Back pain [Unknown]
  - Injection site rash [Unknown]
  - Contusion [Unknown]
  - Injection site pain [Unknown]
  - Platelet count decreased [Unknown]
  - Glycosylated haemoglobin increased [Unknown]
  - Off label use [Unknown]
  - Hypertension [Unknown]
  - Gamma-glutamyltransferase increased [Unknown]
  - Abdominal discomfort [Unknown]
  - Chest pain [Recovered/Resolved]

NARRATIVE: CASE EVENT DATE: 20210430
